FAERS Safety Report 6395782-6 (Version None)
Quarter: 2009Q4

REPORT INFORMATION
  Report Type: 
  Country: None (occurrence: None)
  Receive Date: 20091006
  Receipt Date: 20090928
  Transmission Date: 20100525
  Serious: Yes (Other)
  Sender: FDA-Public Use
  Company Number: CC09-245

PATIENT
  Sex: Male

DRUGS (1)
  1. PRIMATENE MIST INHALER [Suspect]

REACTIONS (1)
  - PRODUCT MEASURED POTENCY ISSUE [None]
